FAERS Safety Report 20329965 (Version 1)
Quarter: 2022Q1

REPORT INFORMATION
  Report Type: Spontaneous
  Country: ES (occurrence: ES)
  Receive Date: 20220113
  Receipt Date: 20220113
  Transmission Date: 20220423
  Serious: Yes (Other)
  Sender: FDA-Public Use
  Company Number: ES-SUN PHARMACEUTICAL INDUSTRIES LTD-2021RR-323385

PATIENT
  Age: 56 Year
  Sex: Male

DRUGS (5)
  1. CISPLATIN [Suspect]
     Active Substance: CISPLATIN
     Indication: Metastases to liver
     Dosage: 80 MILLIGRAM/SQ. METER
     Route: 042
  2. ETOPOSIDE [Suspect]
     Active Substance: ETOPOSIDE
     Indication: Metastases to liver
     Dosage: 120 MILLIGRAM/SQ. METER
     Route: 042
  3. ETOPOSIDE [Suspect]
     Active Substance: ETOPOSIDE
     Dosage: 200 MILLIGRAM/SQ. METER, IN 4 CYCLES EVERY 28 DAYS
     Route: 048
  4. GEMCITABINE [Suspect]
     Active Substance: GEMCITABINE
     Indication: Metastases to liver
     Dosage: 1000 MILLIGRAM/SQ. METER, EVERY 2 WEEKS
     Route: 042
     Dates: start: 201504
  5. TOPOTECAN [Suspect]
     Active Substance: TOPOTECAN HYDROCHLORIDE
     Indication: Metastases to liver
     Dosage: 1.5 MILLIGRAM/SQ. METER, 5 CYCLES
     Route: 042

REACTIONS (1)
  - Disease progression [Unknown]
